FAERS Safety Report 16183411 (Version 1)
Quarter: 2019Q2

REPORT INFORMATION
  Report Type: Spontaneous
  Country: TH (occurrence: TH)
  Receive Date: 20190411
  Receipt Date: 20190411
  Transmission Date: 20190711
  Serious: Yes (Hospitalization)
  Sender: FDA-Public Use
  Company Number: TH-SA-2019SA096172

PATIENT
  Age: 68 Year
  Sex: Female
  Weight: 64 kg

DRUGS (4)
  1. METHOTREXATE. [Concomitant]
     Active Substance: METHOTREXATE
     Indication: RHEUMATOID ARTHRITIS
     Dosage: 15 MG, QW
     Route: 048
  2. AZATHIOPRINE. [Concomitant]
     Active Substance: AZATHIOPRINE
     Indication: RHEUMATOID ARTHRITIS
     Dosage: 50 MG, QD
     Route: 048
  3. ARAVA [Suspect]
     Active Substance: LEFLUNOMIDE
     Indication: RHEUMATOID ARTHRITIS
     Dosage: 100 MG, QW
     Route: 048
     Dates: start: 20180330, end: 20180712
  4. CYCLOSPORIN [Concomitant]
     Active Substance: CYCLOSPORINE
     Indication: RHEUMATOID ARTHRITIS
     Dosage: 100 MG, QD
     Route: 048

REACTIONS (2)
  - Pancytopenia [Recovered/Resolved]
  - Febrile neutropenia [Recovered/Resolved]

NARRATIVE: CASE EVENT DATE: 20180712
